FAERS Safety Report 5488331-8 (Version None)
Quarter: 2007Q4

REPORT INFORMATION
  Report Type: 
  Country: None (occurrence: None)
  Receive Date: 20071017
  Receipt Date: 20071015
  Transmission Date: 20080405
  Serious: Yes (Other)
  Sender: FDA-Public Use
  Company Number: A0685330A

PATIENT
  Age: 40 Year
  Sex: Female
  Weight: 63.6 kg

DRUGS (1)
  1. ALTABAX [Suspect]
     Route: 061
     Dates: start: 20070901, end: 20070901

REACTIONS (3)
  - APPLICATION SITE IRRITATION [None]
  - CELLULITIS [None]
  - ERYTHEMA [None]
